FAERS Safety Report 8814609 (Version 1)
Quarter: 2012Q4

REPORT INFORMATION
  Report Type: Spontaneous
  Country: US (occurrence: None)
  Receive Date: 20120927
  Receipt Date: 20120927
  Transmission Date: 20130627
  Serious: No
  Sender: FDA-Public Use
  Company Number: None

PATIENT
  Age: 57 Year
  Sex: Male
  Weight: 85.1 kg

DRUGS (2)
  1. TELAPREVIR [Suspect]
     Indication: HEPATITIS C
     Dosage: 750 MG TID PO
     Route: 048
     Dates: start: 20111017, end: 20120109
  2. RIBAVIRIN [Suspect]
     Indication: HEPATITIS C
     Dosage: 600 MG  BID  PO
     Route: 048
     Dates: start: 20110917, end: 20120409

REACTIONS (6)
  - Virologic failure [None]
  - Pruritus generalised [None]
  - Rash [None]
  - Anorectal discomfort [None]
  - Urticaria [None]
  - Anal pruritus [None]
